FAERS Safety Report 12414765 (Version 8)
Quarter: 2018Q3

REPORT INFORMATION
  Report Type: Report from Study
  Country: US (occurrence: US)
  Receive Date: 20160529
  Receipt Date: 20180727
  Transmission Date: 20181010
  Serious: No
  Sender: FDA-Public Use
  Company Number: PHHY2015US028445

PATIENT
  Age: 41 Year
  Sex: Male

DRUGS (1)
  1. GILENYA [Suspect]
     Active Substance: FINGOLIMOD HYDROCHLORIDE
     Indication: MULTIPLE SCLEROSIS
     Dosage: UNK, QD
     Route: 048

REACTIONS (20)
  - Limb discomfort [Unknown]
  - Pain in extremity [Unknown]
  - Burning sensation [Recovered/Resolved]
  - Cognitive disorder [Unknown]
  - Joint stiffness [Recovered/Resolved]
  - Disturbance in attention [Unknown]
  - Muscle twitching [Unknown]
  - Fatigue [Unknown]
  - Micturition urgency [Unknown]
  - Musculoskeletal stiffness [Unknown]
  - Decreased appetite [Unknown]
  - Plantar fasciitis [Unknown]
  - Aphasia [Unknown]
  - Speech disorder [Unknown]
  - Ear pain [Recovered/Resolved]
  - Foreign body in eye [Recovered/Resolved]
  - Palpitations [Recovered/Resolved]
  - Depression [Unknown]
  - Musculoskeletal pain [Recovered/Resolved]
  - Ocular discomfort [Unknown]

NARRATIVE: CASE EVENT DATE: 20141001
